FAERS Safety Report 6808719-X (Version None)
Quarter: 2010Q2

REPORT INFORMATION
  Report Type: 
  Country: None (occurrence: None)
  Receive Date: 20100629
  Receipt Date: 20090818
  Transmission Date: 20101027
  Serious: No
  Sender: FDA-Public Use
  Company Number: US-PFIZER INC-2009257566

PATIENT
  Sex: Female

DRUGS (2)
  1. CARDURA [Suspect]
     Dosage: UNK
  2. LIPITOR [Suspect]
     Dosage: UNK

REACTIONS (3)
  - ABNORMAL DREAMS [None]
  - CONSTIPATION [None]
  - NOCTURIA [None]
